FAERS Safety Report 11868254 (Version 2)
Quarter: 2016Q1

REPORT INFORMATION
  Report Type: Spontaneous
  Country: CN (occurrence: CN)
  Receive Date: 20151224
  Receipt Date: 20160202
  Transmission Date: 20160526
  Serious: Yes (Hospitalization, Other)
  Sender: FDA-Public Use
  Company Number: CN-APOTEX-2015AP015452

PATIENT
  Age: 88 Year
  Sex: Male
  Weight: 60 kg

DRUGS (3)
  1. PAXIL [Interacting]
     Active Substance: PAROXETINE HYDROCHLORIDE
     Indication: DEPRESSION
     Dosage: 1 DF, QD
     Route: 048
     Dates: start: 2005
  2. PAROXETINE [Suspect]
     Active Substance: PAROXETINE\PAROXETINE HYDROCHLORIDE
     Indication: DEPRESSION
     Dosage: UNK
     Route: 065
     Dates: start: 2013, end: 2013
  3. DIAZEPAM. [Suspect]
     Active Substance: DIAZEPAM
     Indication: POOR QUALITY SLEEP
     Dosage: 1 DF, UNK
     Route: 048
     Dates: start: 2005

REACTIONS (5)
  - Disease recurrence [Recovered/Resolved]
  - Poor quality sleep [Unknown]
  - Drug dose omission [Unknown]
  - Lung neoplasm malignant [Unknown]
  - Dysphoria [Recovered/Resolved]

NARRATIVE: CASE EVENT DATE: 2005
